FAERS Safety Report 9382264 (Version 2)
Quarter: 2013Q3

REPORT INFORMATION
  Report Type: Spontaneous
  Country: US (occurrence: US)
  Receive Date: 20130703
  Receipt Date: 20130820
  Transmission Date: 20140515
  Serious: Yes (Other)
  Sender: FDA-Public Use
  Company Number: US-UCBSA-090242

PATIENT
  Age: 65 Year
  Sex: Female
  Weight: 65.7 kg

DRUGS (6)
  1. CIMZIA [Suspect]
     Indication: CROHN^S DISEASE
     Dates: start: 20120716
  2. ATIVAN [Concomitant]
  3. ENDOCET [Concomitant]
     Indication: PAIN
  4. CALCIUM [Concomitant]
  5. VITAMIN D [Concomitant]
  6. AMLODIPINE [Concomitant]
     Indication: BLOOD PRESSURE INCREASED

REACTIONS (6)
  - Herpes zoster [Recovered/Resolved]
  - Upper respiratory tract infection [Recovered/Resolved]
  - Abdominal rigidity [Not Recovered/Not Resolved]
  - Diarrhoea [Recovered/Resolved]
  - Weight decreased [Unknown]
  - Facial pain [Unknown]
